FAERS Safety Report 9137882 (Version 1)
Quarter: 2013Q1

REPORT INFORMATION
  Report Type: Spontaneous
  Country: CA (occurrence: CA)
  Receive Date: 20130304
  Receipt Date: 20130304
  Transmission Date: 20140127
  Serious: Yes (Other)
  Sender: FDA-Public Use
  Company Number: CA-BAUSCH-BL-2012-002275

PATIENT
  Age: 36 None
  Sex: Male

DRUGS (6)
  1. BESIVANCE (BESIFLOXACIN OPHTHALMIC SUSPENSION) 0.6% [Suspect]
     Indication: POSTOPERATIVE CARE
     Dosage: DROPS; OPHTHALMIC
     Route: 047
     Dates: start: 20121102
  2. LOTEMAX (LOTEPREDNOL ETABONATE OPHTHALMIC SUSPENSION 0.5%) [Suspect]
     Indication: POSTOPERATIVE CARE
     Dosage: DROPS; OPHTHALMIC
     Route: 047
     Dates: start: 20121104
  3. LIPOSIC OPHTHALMIC DROPS [Suspect]
     Indication: POSTOPERATIVE CARE
     Dosage: DROPS; OPHTHALMIC
     Route: 047
  4. GABAPENTIN [Concomitant]
     Indication: DEPRESSION
  5. PROXYMETACAINE [Concomitant]
     Dates: start: 20121102, end: 20121102
  6. BSS [Concomitant]
     Dates: start: 20121102, end: 20121102

REACTIONS (13)
  - Corneal striae [Unknown]
  - Vision blurred [Recovered/Resolved]
  - Corneal oedema [Recovered/Resolved]
  - Photophobia [Recovered/Resolved]
  - Eye pain [Recovered/Resolved]
  - Foreign body sensation in eyes [Recovered/Resolved]
  - Punctate keratitis [Recovered/Resolved]
  - Corneal opacity [Recovered/Resolved]
  - Diffuse lamellar keratitis [Recovered/Resolved]
  - Corneal infiltrates [Recovered/Resolved]
  - Visual impairment [Recovered/Resolved]
  - Medication residue present [Recovered/Resolved]
  - Off label use [Recovered/Resolved]
